FAERS Safety Report 9615303 (Version 2)
Quarter: 2013Q4

REPORT INFORMATION
  Report Type: Spontaneous
  Country: US (occurrence: US)
  Receive Date: 20131011
  Receipt Date: 20131011
  Transmission Date: 20140711
  Serious: No
  Sender: FDA-Public Use
  Company Number: US-PURDUE-USA-2012-0086264

PATIENT
  Age: 40 Year
  Sex: Female

DRUGS (3)
  1. BUTRANS [Suspect]
     Indication: BACK PAIN
     Dosage: 20 MCG, UNK
     Route: 062
     Dates: start: 201202
  2. BUTRANS [Suspect]
     Indication: SPINAL MENINGEAL CYST
     Dosage: 10 MCG, UNK
     Route: 062
  3. PERCOCET                           /00867901/ [Concomitant]
     Indication: BREAKTHROUGH PAIN
     Dosage: 1 TABLET, 5/DAY AS NEEDED
     Route: 048

REACTIONS (16)
  - Application site haemorrhage [Unknown]
  - Drug administered at inappropriate site [Unknown]
  - Application site ulcer [Unknown]
  - Application site scab [Unknown]
  - Application site burn [Unknown]
  - Drug effect decreased [Unknown]
  - Urticaria [Unknown]
  - Application site urticaria [Unknown]
  - Application site dryness [Unknown]
  - Application site vesicles [Not Recovered/Not Resolved]
  - Dyspnoea [Recovered/Resolved]
  - Somnolence [Unknown]
  - Application site irritation [Unknown]
  - Application site exfoliation [Unknown]
  - Product quality issue [Unknown]
  - Drug ineffective [Unknown]
